FAERS Safety Report 8402855-2 (Version None)
Quarter: 2012Q2

REPORT INFORMATION
  Report Type: 
  Country: None (occurrence: None)
  Receive Date: 20120323
  Receipt Date: 20111205
  Transmission Date: 20120825
  Serious: Yes (Other)
  Sender: FDA-Public Use
  Company Number: 163-21880-11031592

PATIENT
  Age: 86 Year
  Sex: Male

DRUGS (5)
  1. REVLIMID [Suspect]
     Indication: MYELODYSPLASTIC SYNDROME
     Dosage: 5 MG, DAILY X 21 DAYS, PO, 10 MG, DAILY X 21 DAYS, PO
     Route: 048
     Dates: start: 20110124, end: 20110101
  2. REVLIMID [Suspect]
     Indication: MYELODYSPLASTIC SYNDROME
     Dosage: 5 MG, DAILY X 21 DAYS, PO, 10 MG, DAILY X 21 DAYS, PO
     Route: 048
     Dates: start: 20110131, end: 20110214
  3. ASPIRIN [Concomitant]
  4. ARANESP [Concomitant]
  5. ALLOPURINOL [Concomitant]

REACTIONS (9)
  - ABDOMINAL PAIN [None]
  - CONSTIPATION [None]
  - WEIGHT DECREASED [None]
  - NAUSEA [None]
  - VOMITING [None]
  - DIARRHOEA [None]
  - RENAL FAILURE [None]
  - FEELING ABNORMAL [None]
  - DECREASED APPETITE [None]
